FAERS Safety Report 7235013-8 (Version None)
Quarter: 2011Q1

REPORT INFORMATION
  Report Type: 
  Country: None (occurrence: None)
  Receive Date: 20110114
  Receipt Date: 20110114
  Transmission Date: 20110831
  Serious: Yes (Life-Threatening, Hospitalization)
  Sender: FDA-Public Use
  Company Number: None

PATIENT
  Age: 69 Year
  Sex: Female
  Weight: 61.2356 kg

DRUGS (1)
  1. REMICADE [Suspect]
     Indication: PSORIATIC ARTHROPATHY
     Dosage: Q 6 WEEKS IV DRIP
     Route: 041
     Dates: start: 20100801, end: 20101229

REACTIONS (9)
  - URINE OUTPUT DECREASED [None]
  - HAEMORRHAGE [None]
  - HYPERCOAGULATION [None]
  - LETHARGY [None]
  - SINUSITIS [None]
  - APPARENT LIFE THREATENING EVENT [None]
  - CARDIAC FAILURE CONGESTIVE [None]
  - ASTHENIA [None]
  - HEPATIC FAILURE [None]
